FAERS Safety Report 4390857-5 (Version None)
Quarter: 2004Q2

REPORT INFORMATION
  Report Type: 
  Country: None (occurrence: None)
  Receive Date: 20040630
  Receipt Date: 20040621
  Transmission Date: 20050107
  Serious: Yes (Other)
  Sender: FDA-Public Use
  Company Number: 200411011BCC

PATIENT
  Age: 76 Year
  Sex: Female
  Weight: 98.8842 kg

DRUGS (3)
  1. ALEVE [Suspect]
     Indication: ARTHRALGIA
     Dosage: 440 MG, QD, ORAL;  PRN
     Route: 048
     Dates: start: 20040201
  2. ALLOPURINOL [Concomitant]
  3. TUMS [Concomitant]

REACTIONS (2)
  - METRORRHAGIA [None]
  - UTERINE LEIOMYOMA [None]
